FAERS Safety Report 7813945-7 (Version None)
Quarter: 2011Q4

REPORT INFORMATION
  Report Type: 
  Country: None (occurrence: None)
  Receive Date: 20111014
  Receipt Date: 20111012
  Transmission Date: 20120403
  Serious: Yes (Other)
  Sender: FDA-Public Use
  Company Number: JP-PFIZER INC-2011244257

PATIENT
  Age: 58 Year
  Sex: Female
  Weight: 48 kg

DRUGS (2)
  1. VARENICLINE TARTRATE [Suspect]
     Dosage: 0.5 MG, 2X/DAY
     Route: 048
     Dates: start: 20100130
  2. VARENICLINE TARTRATE [Suspect]
     Dosage: 0.5 MG, 1X/DAY
     Route: 048
     Dates: start: 20100127, end: 20100129

REACTIONS (5)
  - INSOMNIA [None]
  - HYPERSOMNIA [None]
  - ROAD TRAFFIC ACCIDENT [None]
  - ALTERED STATE OF CONSCIOUSNESS [None]
  - FALL [None]
